FAERS Safety Report 21936333 (Version 1)
Quarter: 2023Q1

REPORT INFORMATION
  Report Type: Report from Study
  Country: US (occurrence: None)
  Receive Date: 20230201
  Receipt Date: 20230201
  Transmission Date: 20230418
  Serious: Yes (Life-Threatening, Hospitalization)
  Sender: FDA-Public Use
  Company Number: US-ROCHE-3274090

PATIENT
  Age: 1 Year
  Sex: Male
  Weight: 12 kg

DRUGS (24)
  1. TIRAGOLUMAB [Suspect]
     Active Substance: TIRAGOLUMAB
     Indication: Rhabdoid tumour
     Dosage: LAST ADMINISTERED DOSE 29/DEC/2022
     Route: 042
     Dates: start: 20221208
  2. ATEZOLIZUMAB [Suspect]
     Active Substance: ATEZOLIZUMAB
     Indication: Rhabdoid tumour
     Dosage: LAST ADMINISTERED DOSE 29/DEC/2022
     Route: 042
     Dates: start: 20221208
  3. CEFEPIME [Concomitant]
     Active Substance: CEFEPIME HYDROCHLORIDE
     Indication: Sepsis
     Dates: start: 20230113
  4. CEFEPIME [Concomitant]
     Active Substance: CEFEPIME HYDROCHLORIDE
     Dates: start: 20230112
  5. LEVETIRACETAM [Concomitant]
     Active Substance: LEVETIRACETAM
     Route: 048
     Dates: start: 20230113
  6. LEVETIRACETAM [Concomitant]
     Active Substance: LEVETIRACETAM
     Dates: start: 20230112
  7. LEVETIRACETAM [Concomitant]
     Active Substance: LEVETIRACETAM
     Dosage: 2 ML BY MOUTH
  8. METHYLPREDNISOLONE [Concomitant]
     Active Substance: METHYLPREDNISOLONE
     Dates: start: 20230113
  9. VANCOMYCIN [Concomitant]
     Active Substance: VANCOMYCIN
     Indication: Sepsis
     Dates: start: 20230112
  10. VANCOMYCIN [Concomitant]
     Active Substance: VANCOMYCIN
  11. DEXTROSE [Concomitant]
     Active Substance: DEXTROSE
  12. SODIUM CHLORIDE [Concomitant]
     Active Substance: SODIUM CHLORIDE
     Dosage: 40 ML/HR
     Route: 042
  13. SODIUM CHLORIDE [Concomitant]
     Active Substance: SODIUM CHLORIDE
     Dates: start: 20230112
  14. FENTANYL [Concomitant]
     Active Substance: FENTANYL
     Dosage: 12 MCG
     Route: 042
     Dates: start: 20230112
  15. KETAMINE [Concomitant]
     Active Substance: KETAMINE
     Route: 042
     Dates: start: 20230112
  16. KETAMINE [Concomitant]
     Active Substance: KETAMINE
     Route: 042
     Dates: start: 20230112
  17. LORAZEPAM [Concomitant]
     Active Substance: LORAZEPAM
     Route: 042
     Dates: start: 20230112
  18. MIDAZOLAM [Concomitant]
     Active Substance: MIDAZOLAM
     Dates: start: 20230112
  19. RACEPINEPHRINE [Concomitant]
     Active Substance: RACEPINEPHRINE
     Dates: start: 20230112
  20. ROCURONIUM [Concomitant]
     Active Substance: ROCURONIUM BROMIDE
     Dates: start: 20230112
  21. ACETAMINOPHEN [Concomitant]
     Active Substance: ACETAMINOPHEN
     Route: 048
  22. FAMOTIDINE [Concomitant]
     Active Substance: FAMOTIDINE
  23. PREDNISONE [Concomitant]
     Active Substance: PREDNISONE
     Dosage: 5 MG/ML
  24. MOTRIN [Concomitant]
     Active Substance: IBUPROFEN

REACTIONS (2)
  - Seizure [Recovered/Resolved]
  - Respiratory failure [Recovered/Resolved]

NARRATIVE: CASE EVENT DATE: 20230112
